FAERS Safety Report 7708238 (Version 2)
Quarter: 2014Q1

REPORT INFORMATION
  Report Type: Report from Study
  Country: US (occurrence: US)
  Receive Date: 20101214
  Receipt Date: 20140116
  Transmission Date: 20141002
  Serious: Yes (Other)
  Sender: FDA-Public Use
  Company Number: US-ASTRAZENECA-2010SE06217

PATIENT
  Age: 75 Year
  Sex: Female
  Weight: 48.5 kg

DRUGS (7)
  1. CRESTOR [Suspect]
     Indication: BLOOD CHOLESTEROL INCREASED
     Route: 048
     Dates: start: 2010
  2. CRESTOR [Suspect]
     Indication: CARDIAC DISORDER
     Route: 048
     Dates: start: 2010
  3. CRESTOR [Suspect]
     Indication: BLOOD CHOLESTEROL INCREASED
     Dosage: EVERY OTHER DAY
     Route: 048
     Dates: start: 201311, end: 201312
  4. CRESTOR [Suspect]
     Indication: CARDIAC DISORDER
     Dosage: EVERY OTHER DAY
     Route: 048
     Dates: start: 201311, end: 201312
  5. ATENOLOL [Suspect]
     Indication: CARDIAC FIBRILLATION
     Dosage: HALF PILL 25MG DAILY
     Route: 048
     Dates: start: 2013
  6. SYNTHROID [Concomitant]
     Indication: THYROID ADENOMA
  7. ALPRAZOLAM [Concomitant]
     Indication: SOMNOLENCE

REACTIONS (7)
  - Malignant neoplasm of eyelid [Recovered/Resolved]
  - Osteoarthritis [Unknown]
  - Pulmonary mass [Unknown]
  - Cardiomegaly [Unknown]
  - Frustration [Unknown]
  - Intentional drug misuse [Unknown]
  - Drug dose omission [Not Recovered/Not Resolved]
